FAERS Safety Report 9684838 (Version 1)
Quarter: 2013Q4

REPORT INFORMATION
  Report Type: Spontaneous
  Country: US (occurrence: US)
  Receive Date: 20131112
  Receipt Date: 20131112
  Transmission Date: 20140711
  Serious: No
  Sender: FDA-Public Use
  Company Number: US-009507513-1311USA002480

PATIENT
  Sex: 0

DRUGS (1)
  1. AZASITE [Suspect]
     Indication: HORDEOLUM

REACTIONS (2)
  - Eyelid disorder [Unknown]
  - Eyelid infection [Unknown]
